FAERS Safety Report 21870029 (Version 1)
Quarter: 2023Q1

REPORT INFORMATION
  Report Type: Report from Study
  Country: CA (occurrence: CA)
  Receive Date: 20230117
  Receipt Date: 20230117
  Transmission Date: 20230418
  Serious: Yes (Other)
  Sender: FDA-Public Use
  Company Number: CA-TAKEDA-2022TUS064640

PATIENT
  Age: 66 Year
  Sex: Female

DRUGS (4)
  1. HUMAN IMMUNOGLOBULIN G [Suspect]
     Active Substance: HUMAN IMMUNOGLOBULIN G
     Indication: Secondary immunodeficiency
     Dosage: 32 GRAM, 1/WEEK
     Route: 050
     Dates: start: 20220714
  2. HUMAN IMMUNOGLOBULIN G [Suspect]
     Active Substance: HUMAN IMMUNOGLOBULIN G
     Dosage: 32 GRAM, MONTHLY
     Route: 050
     Dates: start: 20220714
  3. HAEGARDA [Concomitant]
     Active Substance: HUMAN C1-ESTERASE INHIBITOR
     Dosage: UNK
     Route: 065
  4. ENTYVIO [Concomitant]
     Active Substance: VEDOLIZUMAB
     Dosage: UNK UNK, Q8WEEKS
     Route: 065

REACTIONS (1)
  - Angioedema [Unknown]
